FAERS Safety Report 23486056 (Version 1)
Quarter: 2024Q1

REPORT INFORMATION
  Report Type: Spontaneous
  Country: US (occurrence: US)
  Receive Date: 20240206
  Receipt Date: 20240206
  Transmission Date: 20240410
  Serious: Yes (Other)
  Sender: FDA-Public Use
  Company Number: US-MLMSERVICE-20240110-4766767-1

PATIENT

DRUGS (9)
  1. HYDROXYCHLOROQUINE [Suspect]
     Active Substance: HYDROXYCHLOROQUINE
     Indication: Systemic lupus erythematosus
     Dosage: 200 MG, QD (HYDROXYCHLOROQUINE SULFATE)
     Dates: start: 1985, end: 1990
  2. HYDROXYCHLOROQUINE [Suspect]
     Active Substance: HYDROXYCHLOROQUINE
     Dosage: 200 MG, QD
     Dates: start: 1994
  3. HYDROXYCHLOROQUINE [Suspect]
     Active Substance: HYDROXYCHLOROQUINE
     Dosage: 400 MG, QD
     Dates: start: 1995
  4. HYDROXYCHLOROQUINE [Suspect]
     Active Substance: HYDROXYCHLOROQUINE
     Dosage: 200 MG, QD
     Dates: start: 201511
  5. HYDROXYCHLOROQUINE [Suspect]
     Active Substance: HYDROXYCHLOROQUINE
     Dosage: 1000 MG, WEEKLY (200 MG, 5IW)
     Dates: start: 201708
  6. HYDROXYCHLOROQUINE [Suspect]
     Active Substance: HYDROXYCHLOROQUINE
     Dosage: 800 MG, WEEKLY (400 MG, BIW)
     Dates: start: 201708
  7. HYDROXYCHLOROQUINE [Suspect]
     Active Substance: HYDROXYCHLOROQUINE
     Dosage: 600 MG, WEEKLY (200 MG, TIW)
     Dates: start: 201803
  8. HYDROXYCHLOROQUINE [Suspect]
     Active Substance: HYDROXYCHLOROQUINE
     Dosage: 1600 MG, WEEKLY (400 MG, QIW)
     Dates: start: 201803
  9. PREDNISONE [Concomitant]
     Active Substance: PREDNISONE
     Indication: Systemic lupus erythematosus
     Dosage: UNK

REACTIONS (4)
  - Retinal degeneration [Unknown]
  - Retinopathy [Unknown]
  - Maculopathy [Unknown]
  - Visual field defect [Unknown]

NARRATIVE: CASE EVENT DATE: 20110901
